FAERS Safety Report 15702720 (Version 2)
Quarter: 2018Q4

REPORT INFORMATION
  Report Type: Report from Study
  Country: BE (occurrence: BE)
  Receive Date: 20181210
  Receipt Date: 20181213
  Transmission Date: 20190205
  Serious: Yes (Death, Other)
  Sender: FDA-Public Use
  Company Number: BE-B.I. PHARMACEUTICALS,INC./RIDGEFIELD-2018-BI-059309

PATIENT
  Age: 32 Year
  Sex: Male
  Weight: 95 kg

DRUGS (1)
  1. PRAXBIND [Suspect]
     Active Substance: IDARUCIZUMAB
     Indication: PROCOAGULANT THERAPY
     Dosage: ADMINISTERED AS TWO 50 ML BOLUS INFUSION
     Route: 042

REACTIONS (4)
  - Pneumonia [Fatal]
  - Post procedural haemorrhage [Unknown]
  - Anaemia postoperative [Unknown]
  - Transplant rejection [Unknown]
